FAERS Safety Report 5056919-4 (Version None)
Quarter: 2006Q2

REPORT INFORMATION
  Report Type: 
  Country: None (occurrence: None)
  Receive Date: 20060622
  Receipt Date: 20051013
  Transmission Date: 20061013
  Serious: Yes (Other)
  Sender: FDA-Public Use
  Company Number: US-JNJFOC-20051003628

PATIENT
  Age: 61 Year
  Sex: Female
  Weight: 60.3284 kg

DRUGS (1)
  1. DURAGESIC-100 [Suspect]
     Indication: PAIN
     Dosage: 150 UG/HR, 1 IN 72 HOUR, TRANSDERMAL
     Route: 062
     Dates: start: 20030101

REACTIONS (3)
  - ANOREXIA [None]
  - DERMATITIS CONTACT [None]
  - WEIGHT DECREASED [None]
